FAERS Safety Report 5165002-9 (Version None)
Quarter: 2006Q4

REPORT INFORMATION
  Report Type: 
  Country: None (occurrence: None)
  Receive Date: 20061124
  Receipt Date: 20061114
  Transmission Date: 20070319
  Serious: Yes (Other)
  Sender: FDA-Public Use
  Company Number: 2006130340

PATIENT
  Age: 55 Year
  Sex: Male
  Weight: 75 kg

DRUGS (1)
  1. LYRICA [Suspect]
     Indication: POLYNEUROPATHY
     Dosage: 450 MG (1 D) ORAL
     Route: 048
     Dates: start: 20060803, end: 20060828

REACTIONS (2)
  - FLUID RETENTION [None]
  - WEIGHT INCREASED [None]
